FAERS Safety Report 7391519-2 (Version None)
Quarter: 2011Q2

REPORT INFORMATION
  Report Type: 
  Country: None (occurrence: None)
  Receive Date: 20110404
  Receipt Date: 20110321
  Transmission Date: 20111010
  Serious: Yes (Other)
  Sender: FDA-Public Use
  Company Number: US-JNJFOC-20110309335

PATIENT
  Sex: Female
  Weight: 56.7 kg

DRUGS (6)
  1. MESALAMINE [Concomitant]
     Route: 065
  2. INFLIXIMAB, RECOMBINANT [Suspect]
     Indication: PRODUCT USED FOR UNKNOWN INDICATION
     Dosage: 4 INFUSIONS PRIOR TO TREAT ENROLLMENT
     Route: 042
  3. ACETAMINOPHEN [Concomitant]
     Route: 065
  4. INFLIXIMAB, RECOMBINANT [Suspect]
     Route: 042
  5. INFLIXIMAB, RECOMBINANT [Suspect]
     Route: 042
  6. ANTIHISTAMINES [Concomitant]
     Route: 065

REACTIONS (3)
  - RENAL FAILURE [None]
  - CHEMICAL POISONING [None]
  - DIALYSIS [None]
